FAERS Safety Report 7224234-6 (Version None)
Quarter: 2011Q1

REPORT INFORMATION
  Report Type: 
  Country: None (occurrence: None)
  Receive Date: 20110113
  Receipt Date: 20110105
  Transmission Date: 20110831
  Serious: Yes (Hospitalization)
  Sender: FDA-Public Use
  Company Number: DE-TEVA-262315GER

PATIENT
  Age: 31 Year
  Sex: Female
  Weight: 71 kg

DRUGS (2)
  1. CARBOPLATIN [Suspect]
     Indication: BORDERLINE OVARIAN TUMOUR
  2. PACLITAXEL [Concomitant]
     Indication: BORDERLINE OVARIAN TUMOUR

REACTIONS (2)
  - TACHYCARDIA [None]
  - FLUSHING [None]
